FAERS Safety Report 15275401 (Version 1)
Quarter: 2018Q3

REPORT INFORMATION
  Report Type: Spontaneous
  Country: US (occurrence: US)
  Receive Date: 20180727
  Receipt Date: 20180727
  Transmission Date: 20181010
  Serious: Yes (Hospitalization)
  Sender: FDA-Public Use
  Company Number: None

PATIENT
  Age: 50 Year
  Sex: Female
  Weight: 72.6 kg

DRUGS (1)
  1. DOCETAXEL 160 MG/16 ML. HOSPIRA [Suspect]
     Active Substance: DOCETAXEL
     Route: 042
     Dates: start: 20180627, end: 20180718

REACTIONS (2)
  - Flushing [None]
  - Urticaria [None]

NARRATIVE: CASE EVENT DATE: 20180718
